FAERS Safety Report 25093235 (Version 1)
Quarter: 2025Q1

REPORT INFORMATION
  Report Type: Spontaneous
  Country: US (occurrence: US)
  Receive Date: 20250319
  Receipt Date: 20250319
  Transmission Date: 20250409
  Serious: Yes (Hospitalization, Other)
  Sender: PHARMADAX
  Company Number: US-PDX-000407

PATIENT
  Age: 67 Year
  Sex: Female

DRUGS (16)
  1. METOPROLOL [Suspect]
     Active Substance: METOPROLOL
     Indication: Hypertension
     Route: 065
  2. AMLODIPINE [Suspect]
     Active Substance: AMLODIPINE BESYLATE
     Indication: Hypertension
     Route: 065
  3. MIRTAZAPINE [Suspect]
     Active Substance: MIRTAZAPINE
     Indication: Depression
     Route: 065
  4. QUETIAPINE [Suspect]
     Active Substance: QUETIAPINE
     Indication: Bipolar disorder
     Route: 065
  5. LEVETIRACETAM [Suspect]
     Active Substance: LEVETIRACETAM
     Indication: Seizure
     Route: 065
  6. MELATONIN [Suspect]
     Active Substance: MELATONIN
     Indication: Obstructive sleep apnoea syndrome
     Route: 065
  7. LEVOTHYROXINE [Suspect]
     Active Substance: LEVOTHYROXINE
     Indication: Suicide attempt
     Route: 065
  8. PANTOPRAZOLE [Suspect]
     Active Substance: PANTOPRAZOLE
     Indication: Suicide attempt
     Route: 065
  9. LEVETIRACETAM [Suspect]
     Active Substance: LEVETIRACETAM
     Indication: Suicide attempt
     Route: 065
  10. MELATONIN [Suspect]
     Active Substance: MELATONIN
     Indication: Suicide attempt
     Route: 065
  11. QUETIAPINE [Suspect]
     Active Substance: QUETIAPINE
     Indication: Bipolar disorder
     Route: 065
  12. QUETIAPINE [Suspect]
     Active Substance: QUETIAPINE
     Indication: Suicide attempt
     Route: 065
  13. QUETIAPINE [Suspect]
     Active Substance: QUETIAPINE
     Indication: Suicide attempt
     Route: 065
  14. METOPROLOL [Suspect]
     Active Substance: METOPROLOL
     Indication: Suicide attempt
     Route: 065
  15. AMLODIPINE [Suspect]
     Active Substance: AMLODIPINE BESYLATE
     Indication: Suicide attempt
     Route: 065
  16. MIRTAZAPINE [Suspect]
     Active Substance: MIRTAZAPINE
     Indication: Suicide attempt
     Route: 065

REACTIONS (4)
  - Intentional overdose [Unknown]
  - Respiratory failure [Recovered/Resolved]
  - Metabolic acidosis [Recovered/Resolved]
  - Product use in unapproved indication [Unknown]
